FAERS Safety Report 19587866 (Version 7)
Quarter: 2022Q1

REPORT INFORMATION
  Report Type: Report from Study
  Country: US (occurrence: US)
  Receive Date: 20210721
  Receipt Date: 20220315
  Transmission Date: 20220424
  Serious: Yes (Hospitalization)
  Sender: FDA-Public Use
  Company Number: US-CELGENE-USA-20210703309

PATIENT
  Age: 72 Year
  Sex: Male

DRUGS (8)
  1. LENALIDOMIDE [Suspect]
     Active Substance: LENALIDOMIDE
     Indication: Plasma cell myeloma
     Route: 048
     Dates: start: 20210708, end: 20210711
  2. LENALIDOMIDE [Suspect]
     Active Substance: LENALIDOMIDE
     Route: 048
     Dates: start: 20210805
  3. IXAZOMIB [Suspect]
     Active Substance: IXAZOMIB
     Indication: Plasma cell myeloma
     Route: 048
     Dates: start: 20210708, end: 20210708
  4. IXAZOMIB [Suspect]
     Active Substance: IXAZOMIB
     Route: 048
     Dates: start: 20210805
  5. DARATUMUMAB [Suspect]
     Active Substance: DARATUMUMAB
     Indication: Plasma cell myeloma
     Route: 041
     Dates: start: 20210708, end: 20210708
  6. DARATUMUMAB [Suspect]
     Active Substance: DARATUMUMAB
     Route: 041
     Dates: start: 20210728
  7. DEXAMETHASONE [Suspect]
     Active Substance: DEXAMETHASONE
     Indication: Plasma cell myeloma
     Route: 065
     Dates: start: 20210708, end: 20210709
  8. DEXAMETHASONE [Suspect]
     Active Substance: DEXAMETHASONE
     Route: 065
     Dates: start: 20210728

REACTIONS (1)
  - Duodenitis [Recovered/Resolved]

NARRATIVE: CASE EVENT DATE: 20210712
